FAERS Safety Report 14837339 (Version 2)
Quarter: 2018Q3

REPORT INFORMATION
  Report Type: Report from Study
  Country: MX (occurrence: MX)
  Receive Date: 20180502
  Receipt Date: 20180905
  Transmission Date: 20181010
  Serious: Yes (Other)
  Sender: FDA-Public Use
  Company Number: MX-BAYER-2018-006070

PATIENT
  Age: 60 Year
  Sex: Female
  Weight: 45 kg

DRUGS (2)
  1. NEXAVAR [Suspect]
     Active Substance: SORAFENIB
     Indication: RENAL CELL CARCINOMA
     Dosage: UNK (SOMETIMES TAKES 3 PILL AND OTHERS 4)
     Dates: start: 20171027
  2. TRAMACET [PARACETAMOL,TRAMADOL] [Concomitant]
     Active Substance: ACETAMINOPHEN\TRAMADOL

REACTIONS (12)
  - Skin exfoliation [Not Recovered/Not Resolved]
  - Pain in extremity [Recovering/Resolving]
  - Pain in extremity [Not Recovered/Not Resolved]
  - Alopecia [Recovered/Resolved]
  - Incorrect dosage administered [Recovered/Resolved]
  - Dry skin [Recovering/Resolving]
  - Muscle spasms [None]
  - Fatigue [None]
  - Hepatitis [Not Recovered/Not Resolved]
  - Skin exfoliation [Recovering/Resolving]
  - Intentional product misuse [None]
  - Abdominal pain upper [None]

NARRATIVE: CASE EVENT DATE: 20171027
